FAERS Safety Report 6541057-1 (Version None)
Quarter: 2010Q1

REPORT INFORMATION
  Report Type: 
  Country: None (occurrence: None)
  Receive Date: 20100118
  Receipt Date: 20100104
  Transmission Date: 20100710
  Serious: Yes (Death)
  Sender: FDA-Public Use
  Company Number: US-BAYER-201011180GPV

PATIENT
  Age: 40 Year
  Sex: Male

DRUGS (3)
  1. ACETAMINOPHEN/ DIPHENHYDRAMINE [Suspect]
     Indication: COMPLETED SUICIDE
  2. CITRIC ACID/ SALICYLATE/ SODIUM BICARBONATE [Suspect]
     Indication: COMPLETED SUICIDE
  3. ACETAMINOPHEN [Suspect]
     Indication: COMPLETED SUICIDE

REACTIONS (1)
  - DRUG TOXICITY [None]
